FAERS Safety Report 21957071 (Version 1)
Quarter: 2023Q1

REPORT INFORMATION
  Report Type: Spontaneous
  Country: US (occurrence: None)
  Receive Date: 20230203
  Receipt Date: 20230203
  Transmission Date: 20230417
  Serious: Yes (Other)
  Sender: FDA-Public Use
  Company Number: None

PATIENT
  Age: 63 Year
  Sex: Female
  Weight: 80.6 kg

DRUGS (2)
  1. HEPARIN SODIUM [Suspect]
     Active Substance: HEPARIN SODIUM
     Dosage: OTHER FREQUENCY : EACH HHD TREATMENT;?
     Route: 040
     Dates: start: 20220323
  2. DEVICE [Suspect]
     Active Substance: DEVICE

REACTIONS (2)
  - Thrombosis in device [None]
  - Product substitution issue [None]

NARRATIVE: CASE EVENT DATE: 20230123
